FAERS Safety Report 25300536 (Version 2)
Quarter: 2025Q2

REPORT INFORMATION
  Report Type: Spontaneous
  Country: GB (occurrence: GB)
  Receive Date: 20250512
  Receipt Date: 20250516
  Transmission Date: 20250716
  Serious: Yes (Other)
  Sender: FRESENIUS KABI
  Company Number: None

PATIENT
  Age: 44 Year
  Sex: Female

DRUGS (1)
  1. ADALIMUMAB [Suspect]
     Active Substance: ADALIMUMAB
     Indication: Rheumatoid arthritis
     Dates: start: 20250428

REACTIONS (10)
  - Tonsillar hypertrophy [Recovering/Resolving]
  - Lymphadenopathy [Recovering/Resolving]
  - Diarrhoea [Unknown]
  - Oropharyngeal pain [Recovering/Resolving]
  - Dysphonia [Recovering/Resolving]
  - Nausea [Recovering/Resolving]
  - Vomiting [Recovered/Resolved with Sequelae]
  - Hyperhidrosis [Recovered/Resolved]
  - Feeling hot [Recovered/Resolved]
  - Paranasal sinus discomfort [Not Recovered/Not Resolved]

NARRATIVE: CASE EVENT DATE: 20250428
